FAERS Safety Report 8013972-3 (Version None)
Quarter: 2011Q4

REPORT INFORMATION
  Report Type: 
  Country: None (occurrence: None)
  Receive Date: 20111229
  Receipt Date: 20111220
  Transmission Date: 20120403
  Serious: Yes (Hospitalization)
  Sender: FDA-Public Use
  Company Number: US-BAYER-2011-060320

PATIENT
  Age: 32 Year
  Sex: Female
  Weight: 109 kg

DRUGS (3)
  1. YAZ [Suspect]
     Indication: ORAL CONTRACEPTION
     Dosage: UNK
     Route: 048
     Dates: start: 20080901, end: 20090701
  2. LEVOTHYROXINE SODIUM [Concomitant]
     Indication: HYPOTHYROIDISM
     Dosage: 0.25 MG, QD
     Route: 048
     Dates: start: 19980101
  3. PHENTERMINE [Concomitant]
     Dosage: 37.5 MG, UNK
     Route: 048

REACTIONS (5)
  - PAIN [None]
  - PREGNANCY [None]
  - CHOLELITHIASIS [None]
  - EMOTIONAL DISTRESS [None]
  - CHOLECYSTITIS CHRONIC [None]
